FAERS Safety Report 15326044 (Version 3)
Quarter: 2018Q3

REPORT INFORMATION
  Report Type: Spontaneous
  Country: DE (occurrence: DE)
  Receive Date: 20180828
  Receipt Date: 20180918
  Transmission Date: 20181010
  Serious: Yes (Other)
  Sender: FDA-Public Use
  Company Number: PHHY2018DE051189

PATIENT
  Age: 26 Year
  Sex: Male

DRUGS (12)
  1. DRONABINOL. [Suspect]
     Active Substance: DRONABINOL
     Indication: HUNTINGTON^S DISEASE
     Dosage: 8.6 MG, TID
     Route: 065
  2. AMISULPRIDE [Suspect]
     Active Substance: AMISULPRIDE
     Indication: PSYCHOTIC DISORDER
     Route: 065
  3. PAROXETINE. [Concomitant]
     Active Substance: PAROXETINE
     Indication: HUNTINGTON^S DISEASE
     Dosage: 10 MG, UNK
     Route: 065
  4. CLOZAPINE. [Concomitant]
     Active Substance: CLOZAPINE
     Indication: PSYCHOTIC DISORDER
     Route: 065
  5. OLANZAPINE. [Suspect]
     Active Substance: OLANZAPINE
     Indication: PSYCHOTIC DISORDER
  6. RIVOTRIL [Concomitant]
     Active Substance: CLONAZEPAM
     Indication: HUNTINGTON^S DISEASE
     Dosage: 0.5 MG, AT NIGHT
     Route: 065
  7. OLANZAPINE. [Suspect]
     Active Substance: OLANZAPINE
     Indication: PARKINSONISM
     Route: 065
  8. RISPERIDONE. [Suspect]
     Active Substance: RISPERIDONE
     Indication: OBSESSIVE-COMPULSIVE DISORDER
     Route: 065
  9. LEVODOPA+BENSERAZIDE [Suspect]
     Active Substance: BENSERAZIDE\LEVODOPA
     Indication: PARKINSONISM
     Dosage: (50/12.5) MG, TID
     Route: 065
  10. RISPERIDONE. [Suspect]
     Active Substance: RISPERIDONE
     Indication: PSYCHOTIC DISORDER
  11. QUETIAPINE. [Suspect]
     Active Substance: QUETIAPINE
     Indication: OBSESSIVE-COMPULSIVE DISORDER
     Route: 065
  12. DRONABINOL. [Suspect]
     Active Substance: DRONABINOL
     Indication: PARKINSONISM
     Dosage: 2.2 MG, TID
     Route: 065

REACTIONS (7)
  - Psychotic disorder [Unknown]
  - Product use in unapproved indication [Unknown]
  - Drug ineffective [Unknown]
  - Delusion [Recovered/Resolved]
  - Hallucination, visual [Recovering/Resolving]
  - Psychotic disorder [Recovering/Resolving]
  - Hallucinations, mixed [Not Recovered/Not Resolved]
